FAERS Safety Report 7686684-3 (Version None)
Quarter: 2011Q3

REPORT INFORMATION
  Report Type: 
  Country: None (occurrence: None)
  Receive Date: 20110816
  Receipt Date: 20110808
  Transmission Date: 20111222
  Serious: Yes (Hospitalization)
  Sender: FDA-Public Use
  Company Number: US-ACTELION-A-US2011-52558

PATIENT

DRUGS (4)
  1. TRACLEER [Suspect]
     Indication: PULMONARY ARTERIAL HYPERTENSION
     Dosage: UNK
     Route: 048
     Dates: start: 20060213
  2. COUMADIN [Concomitant]
  3. ADCIRCA [Concomitant]
  4. REMODULIN [Suspect]

REACTIONS (2)
  - OVERDOSE [None]
  - HYPOTENSION [None]
